FAERS Safety Report 7714443-1 (Version None)
Quarter: 2011Q3

REPORT INFORMATION
  Report Type: 
  Country: None (occurrence: None)
  Receive Date: 20110829
  Receipt Date: 20110825
  Transmission Date: 20111222
  Serious: Yes (Hospitalization)
  Sender: FDA-Public Use
  Company Number: FR-SP-2011-07589

PATIENT
  Sex: Male

DRUGS (3)
  1. IMMUCYST [Suspect]
     Indication: BLADDER CANCER
     Route: 043
     Dates: start: 20091021, end: 20110711
  2. QUESTRAN [Concomitant]
     Dates: start: 20110713
  3. CLARITHROMYCIN [Concomitant]
     Dates: start: 20110713

REACTIONS (6)
  - HEADACHE [None]
  - PYREXIA [None]
  - DISSEMINATED TUBERCULOSIS [None]
  - DECREASED APPETITE [None]
  - HYPERSENSITIVITY [None]
  - COUGH [None]
